FAERS Safety Report 9134393 (Version 1)
Quarter: 2013Q1

REPORT INFORMATION
  Report Type: Spontaneous
  Country: BR (occurrence: BR)
  Receive Date: 20130304
  Receipt Date: 20130304
  Transmission Date: 20140127
  Serious: Yes (Other)
  Sender: FDA-Public Use
  Company Number: BR-ACCORD-016633

PATIENT
  Age: 68 Year
  Sex: Female
  Weight: 69.6 kg

DRUGS (9)
  1. HYDROCHLOROTHIAZIDE [Concomitant]
     Route: 048
  2. DIPHENHYDRAMINE [Concomitant]
     Route: 042
     Dates: start: 20121227, end: 20121227
  3. ONDANSETRON [Concomitant]
     Route: 042
     Dates: start: 20121227, end: 20121227
  4. PACLITAXEL [Suspect]
     Indication: BREAST CANCER
     Dosage: INDICATION-BREAST MALIGNANCY
     Route: 042
     Dates: start: 20121114, end: 20121227
  5. LOSARTAN [Concomitant]
     Route: 048
     Dates: start: 20121227, end: 20121227
  6. RANITIDINE [Concomitant]
     Route: 042
     Dates: start: 20121227, end: 20121227
  7. DEXAMETHASONE [Concomitant]
     Route: 042
     Dates: start: 20121227, end: 20121227
  8. TYLEX [Concomitant]
     Route: 048
     Dates: start: 20121123
  9. HYDROCORTIZON [Concomitant]
     Route: 042
     Dates: start: 20121227, end: 20121227

REACTIONS (5)
  - Pain in extremity [Unknown]
  - Chest pain [Recovered/Resolved]
  - Dyspnoea [Recovered/Resolved]
  - Erythema [Recovered/Resolved]
  - Oxygen saturation decreased [Recovered/Resolved]
